FAERS Safety Report 25865843 (Version 1)
Quarter: 2025Q3

REPORT INFORMATION
  Report Type: Spontaneous
  Country: US (occurrence: US)
  Receive Date: 20250930
  Receipt Date: 20250930
  Transmission Date: 20251021
  Serious: No
  Sender: MERCK SHARP & DOHME LLC
  Company Number: US-009507513-2330512

PATIENT
  Sex: Male

DRUGS (4)
  1. TEMOZOLOMIDE [Suspect]
     Active Substance: TEMOZOLOMIDE
     Indication: Brain stem glioma
  2. IZICOPAN [Concomitant]
     Active Substance: IZICOPAN
     Indication: Brain stem glioma
  3. EVEROLIMUS [Concomitant]
     Active Substance: EVEROLIMUS
     Indication: Brain stem glioma
  4. HYDROXYCHLOROQUINE [Concomitant]
     Active Substance: HYDROXYCHLOROQUINE
     Indication: Brain stem glioma

REACTIONS (1)
  - Off label use [Unknown]
